FAERS Safety Report 23405386 (Version 1)
Quarter: 2024Q1

REPORT INFORMATION
  Report Type: Spontaneous
  Country: FR (occurrence: FR)
  Receive Date: 20240116
  Receipt Date: 20240116
  Transmission Date: 20240409
  Serious: Yes (Other)
  Sender: FDA-Public Use
  Company Number: None

PATIENT
  Age: 95 Year
  Sex: Female

DRUGS (7)
  1. URSODIOL [Suspect]
     Active Substance: URSODIOL
     Indication: Incorrect dose administered
     Dosage: 500 MG, QD
     Route: 048
     Dates: start: 20230823, end: 20230823
  2. POTASSIUM CHLORIDE [Suspect]
     Active Substance: POTASSIUM CHLORIDE
     Indication: Incorrect dose administered
     Dosage: 1200.000MG
     Route: 048
     Dates: start: 20230823, end: 20230823
  3. ELIQUIS [Suspect]
     Active Substance: APIXABAN
     Indication: Incorrect dose administered
     Dosage: 5.000MG
     Route: 048
     Dates: start: 20230823, end: 20230823
  4. IRBESARTAN [Suspect]
     Active Substance: IRBESARTAN
     Indication: Product administration error
     Route: 048
     Dates: start: 20230823, end: 20230823
  5. LANSOPRAZOLE [Suspect]
     Active Substance: LANSOPRAZOLE
     Indication: Product administration error
     Route: 048
     Dates: start: 20230823, end: 20230823
  6. FUROSEMIDE [Suspect]
     Active Substance: FUROSEMIDE
     Indication: Incorrect dose administered
     Route: 065
  7. XANAX [Suspect]
     Active Substance: ALPRAZOLAM
     Indication: Product administration error
     Route: 065

REACTIONS (2)
  - Hypotension [Recovered/Resolved]
  - Product administration error [Recovered/Resolved]

NARRATIVE: CASE EVENT DATE: 20230823
